FAERS Safety Report 4667058-6 (Version None)
Quarter: 2005Q2

REPORT INFORMATION
  Report Type: 
  Country: None (occurrence: None)
  Receive Date: 20050520
  Receipt Date: 20041220
  Transmission Date: 20051028
  Serious: Yes (Other)
  Sender: FDA-Public Use
  Company Number: PHEH2004US13504

PATIENT
  Age: 74 Year
  Sex: Female

DRUGS (23)
  1. AREDIA [Suspect]
     Indication: BREAST CANCER METASTATIC
     Dosage: 90 MG, QMO
     Dates: start: 19990331, end: 20040706
  2. HERCEPTIN [Concomitant]
     Dosage: 175 MG, QW
  3. TAXOTERE [Concomitant]
     Dosage: 58 MG/QOW
  4. ARIMIDEX [Concomitant]
     Dosage: 1 MG, QD
  5. PREVACID [Concomitant]
     Dosage: 30 MG, QD
  6. BUMEX [Concomitant]
     Dosage: 1 MG, PRN
  7. LOPRESSOR [Concomitant]
     Dosage: 50 MG, BID
  8. MIRTAZAPINE [Concomitant]
     Dosage: 15 MG, QD
  9. AMBIEN [Concomitant]
     Dosage: 10 MG, PRN
  10. FERROUS SULFATE TAB [Concomitant]
     Dosage: 325 MG, QD
  11. DEXAMETHASONE [Concomitant]
     Dosage: 4MG PM/Q TREATMENT
  12. EPOGEN [Concomitant]
     Dosage: UNK, PRN
  13. K-DUR 10 [Concomitant]
     Dosage: 20 MEQ, QD
  14. CELEXA [Concomitant]
     Dosage: 20 MG, QD
  15. ZAROXOLYN [Concomitant]
     Dosage: 5 MG, PRN
  16. FOSAMAX [Concomitant]
     Dosage: 70 MG, QW
  17. SYNTHROID [Concomitant]
     Dosage: .075 MG/QW
  18. QUININE SULFATE [Concomitant]
     Dosage: 260 MG, BID
  19. LIDODERM [Concomitant]
     Dosage: UNK, QD
  20. HYDROCHLOROTHIAZIDE [Concomitant]
     Dosage: 25 MG, QD
  21. WARFARIN [Concomitant]
     Dosage: 5 MG QD EXCEPT WED/SUN
  22. CIPROFLOXACIN HCL [Concomitant]
     Dosage: 500 MG, QD
  23. ZOLOFT [Concomitant]

REACTIONS (4)
  - EDENTULOUS [None]
  - JAW DISORDER [None]
  - OSTEONECROSIS [None]
  - SOFT TISSUE DISORDER [None]
